FAERS Safety Report 8198539-9 (Version None)
Quarter: 2012Q1

REPORT INFORMATION
  Report Type: 
  Country: None (occurrence: None)
  Receive Date: 20120309
  Receipt Date: 20120103
  Transmission Date: 20120608
  Serious: No
  Sender: FDA-Public Use
  Company Number: US-AMGEN-USASP2012000725

PATIENT
  Age: 7 Month
  Sex: Male
  Weight: 10.794 kg

DRUGS (1)
  1. XGEVA [Suspect]
     Dosage: UNK
     Route: 064

REACTIONS (5)
  - CROUP INFECTIOUS [None]
  - SEBORRHOEIC DERMATITIS [None]
  - OTITIS MEDIA [None]
  - UPPER RESPIRATORY TRACT INFECTION [None]
  - VIRAL UPPER RESPIRATORY TRACT INFECTION [None]
